FAERS Safety Report 8410787-9 (Version None)
Quarter: 2012Q2

REPORT INFORMATION
  Report Type: 
  Country: None (occurrence: None)
  Receive Date: 20120605
  Receipt Date: 20120521
  Transmission Date: 20120825
  Serious: Yes (Other)
  Sender: FDA-Public Use
  Company Number: JP-ASTELLAS-2012US005181

PATIENT
  Age: 68 Year
  Sex: Male

DRUGS (2)
  1. TARCEVA [Suspect]
     Indication: SMALL CELL LUNG CANCER METASTATIC
     Dosage: 150 MG, UID/QD
     Route: 048
  2. TARCEVA [Suspect]
     Dosage: 100 MG, UID/QD
     Route: 048

REACTIONS (3)
  - FOLLICULITIS [None]
  - PARONYCHIA [None]
  - REACTIVE PERFORATING COLLAGENOSIS [None]
